FAERS Safety Report 4441046-7 (Version None)
Quarter: 2004Q3

REPORT INFORMATION
  Report Type: 
  Country: None (occurrence: None)
  Receive Date: 20040902
  Receipt Date: 20040902
  Transmission Date: 20050211
  Serious: Yes (Life-Threatening)
  Sender: FDA-Public Use
  Company Number: None

PATIENT
  Age: 7 Year
  Sex: Female
  Weight: 35 kg

DRUGS (2)
  1. SUCCINYLCHOLINE  20MG PER ML [Suspect]
     Indication: LARYNGOSPASM
     Dosage: 6MILLIGRAMS  INTRAVENOUS
     Route: 042
     Dates: start: 20040726, end: 20040726
  2. SUCCINYLCHOLINE  20MG PER ML [Suspect]
     Indication: OBSTRUCTIVE AIRWAYS DISORDER
     Dosage: 6MILLIGRAMS  INTRAVENOUS
     Route: 042
     Dates: start: 20040726, end: 20040726

REACTIONS (6)
  - CARDIO-RESPIRATORY ARREST [None]
  - HYPERKALAEMIA [None]
  - HYPERTHERMIA MALIGNANT [None]
  - RHABDOMYOLYSIS [None]
  - VENTRICULAR FIBRILLATION [None]
  - VENTRICULAR TACHYCARDIA [None]
